FAERS Safety Report 8090883-9 (Version None)
Quarter: 2012Q1

REPORT INFORMATION
  Report Type: 
  Country: None (occurrence: None)
  Receive Date: 20120125
  Receipt Date: 20120111
  Transmission Date: 20120608
  Serious: Yes (Hospitalization, Other)
  Sender: FDA-Public Use
  Company Number: 2012MA000482

PATIENT
  Sex: Female

DRUGS (23)
  1. AMLODIPINE [Concomitant]
  2. NEXIUM [Concomitant]
  3. SPIRIVA [Concomitant]
  4. DIGOXIN [Suspect]
     Dosage: 0.25 MG;QD;PO
     Route: 048
     Dates: start: 20060713, end: 20080509
  5. FUROSEMIDE [Concomitant]
  6. HYDROCHLOROTHIAZIDE [Concomitant]
  7. NIASPAN [Concomitant]
  8. TRICOR [Concomitant]
  9. METOPROLOL [Concomitant]
  10. POTASSIUM CHLORIDE [Concomitant]
  11. DIAZEPAM [Concomitant]
  12. TRAZODONE HCL [Concomitant]
  13. ALBUTEROL [Concomitant]
  14. PIOGLITAZONE [Concomitant]
  15. ATORVASTATIN [Concomitant]
  16. HYDRALAZINE HCL [Concomitant]
  17. LOVASTATIN [Concomitant]
  18. MACROBID [Concomitant]
  19. OMEPRAZOLE [Concomitant]
  20. QUINARETIC [Concomitant]
  21. CLOPIDOGREL [Concomitant]
  22. INSULIN [Concomitant]
  23. NITROGLYCERIN [Concomitant]

REACTIONS (51)
  - DYSPNOEA [None]
  - NECK PAIN [None]
  - ATELECTASIS [None]
  - EXCORIATION [None]
  - RENAL DISORDER [None]
  - MESENTERIC ARTERY STENOSIS [None]
  - DIABETES MELLITUS INADEQUATE CONTROL [None]
  - ELECTROCARDIOGRAM POOR R-WAVE PROGRESSION [None]
  - BLOOD PRESSURE DIASTOLIC DECREASED [None]
  - BLOOD PRESSURE SYSTOLIC INCREASED [None]
  - PALPITATIONS [None]
  - NAUSEA [None]
  - SINUS BRADYCARDIA [None]
  - LEFT VENTRICULAR HYPERTROPHY [None]
  - SYNCOPE [None]
  - NORMAL PRESSURE HYDROCEPHALUS [None]
  - AORTIC ARTERIOSCLEROSIS [None]
  - CHEST DISCOMFORT [None]
  - COUGH [None]
  - FALL [None]
  - RIB FRACTURE [None]
  - PRESYNCOPE [None]
  - TOXICITY TO VARIOUS AGENTS [None]
  - ELECTROCARDIOGRAM LOW VOLTAGE [None]
  - ATRIOVENTRICULAR BLOCK FIRST DEGREE [None]
  - JOINT SWELLING [None]
  - DIZZINESS [None]
  - INSULIN-REQUIRING TYPE 2 DIABETES MELLITUS [None]
  - ELECTROCARDIOGRAM T WAVE AMPLITUDE DECREASED [None]
  - CARDIAC MURMUR [None]
  - ELECTROCARDIOGRAM ST-T CHANGE [None]
  - CONDUCTION DISORDER [None]
  - PAIN [None]
  - VERTIGO [None]
  - ACUTE PRERENAL FAILURE [None]
  - PULMONARY FIBROSIS [None]
  - ARTERIOSCLEROSIS [None]
  - BRONCHITIS CHRONIC [None]
  - RENAL ARTERY STENOSIS [None]
  - INCONTINENCE [None]
  - VENTRICULAR EXTRASYSTOLES [None]
  - ELECTROCARDIOGRAM REPOLARISATION ABNORMALITY [None]
  - CEREBRAL ATROPHY [None]
  - CEREBRAL SMALL VESSEL ISCHAEMIC DISEASE [None]
  - FEELING ABNORMAL [None]
  - OEDEMA [None]
  - VOMITING [None]
  - DEHYDRATION [None]
  - SINUS ARRHYTHMIA [None]
  - LEFT ATRIAL DILATATION [None]
  - ATRIOVENTRICULAR BLOCK SECOND DEGREE [None]
